FAERS Safety Report 7616664-5 (Version None)
Quarter: 2011Q3

REPORT INFORMATION
  Report Type: 
  Country: None (occurrence: None)
  Receive Date: 20110718
  Receipt Date: 20110714
  Transmission Date: 20111222
  Serious: Yes (Hospitalization)
  Sender: FDA-Public Use
  Company Number: US-BRISTOL-MYERS SQUIBB COMPANY-15683907

PATIENT
  Age: 74 Year
  Sex: Male

DRUGS (31)
  1. VYTORIN [Concomitant]
     Dosage: 1DF:10/40MG
     Route: 048
  2. ZOFRAN [Concomitant]
     Route: 048
  3. ACIPHEX [Concomitant]
     Dosage: PRN
     Route: 048
  4. ALLOPURINOL [Concomitant]
     Route: 048
  5. ASPIRIN [Concomitant]
     Route: 048
  6. PLAVIX [Concomitant]
  7. M.V.I. [Concomitant]
     Dosage: 1DF:1TAB
     Route: 048
  8. CELEBREX [Concomitant]
     Dosage: PRN
     Route: 048
  9. GLYBURIDE [Concomitant]
     Route: 048
  10. BENADRYL [Concomitant]
     Route: 048
  11. PREDNISONE [Concomitant]
     Route: 048
  12. POTASSIUM CHLORIDE [Concomitant]
  13. CARVEDILOL [Concomitant]
  14. ACIPHEX [Concomitant]
  15. PROTONIX [Concomitant]
     Route: 048
  16. IPILIMUMAB [Suspect]
     Indication: MALIGNANT MELANOMA
     Route: 042
     Dates: start: 20110118, end: 20110208
  17. TYLENOL-500 [Concomitant]
     Dosage: 1DF: TABS
  18. IMODIUM [Concomitant]
     Route: 048
  19. DIOVAN [Concomitant]
     Route: 048
  20. DILTIAZEM HCL [Concomitant]
     Route: 048
  21. HYDROCORTISONE [Concomitant]
     Dosage: CREAM 10MG AND 5MG
  22. GLUCOSAMINE [Concomitant]
     Route: 048
  23. CHONDROITIN [Concomitant]
     Route: 048
  24. ACYCLOVIR [Concomitant]
     Route: 048
  25. PREVACID [Concomitant]
     Dosage: PRN
     Route: 048
  26. ZOFRAN [Concomitant]
     Route: 048
  27. COMPAZINE [Concomitant]
     Dosage: Q4-6 HRS
  28. LOMOTIL [Concomitant]
     Route: 048
  29. LASIX [Concomitant]
     Route: 048
  30. HYDROCHLOROTHIAZIDE [Concomitant]
     Route: 048
  31. INSULIN SLIDING SCALE [Concomitant]

REACTIONS (3)
  - DIARRHOEA [None]
  - LARGE INTESTINE PERFORATION [None]
  - DEHYDRATION [None]
